FAERS Safety Report 5657660-7 (Version None)
Quarter: 2008Q1

REPORT INFORMATION
  Report Type: 
  Country: None (occurrence: None)
  Receive Date: 20080310
  Receipt Date: 20080303
  Transmission Date: 20080703
  Serious: Yes (Other)
  Sender: FDA-Public Use
  Company Number: PHHY2008JP02580

PATIENT
  Sex: Female

DRUGS (2)
  1. TOFRANIL [Suspect]
     Route: 048
  2. RITALIN [Suspect]

REACTIONS (5)
  - ABDOMINAL DISTENSION [None]
  - DYSPNOEA [None]
  - RASH [None]
  - SUICIDE ATTEMPT [None]
  - THIRST [None]
